FAERS Safety Report 7121588-6 (Version None)
Quarter: 2010Q4

REPORT INFORMATION
  Report Type: 
  Country: None (occurrence: None)
  Receive Date: 20101124
  Receipt Date: 20101111
  Transmission Date: 20110411
  Serious: Yes (Hospitalization, Other)
  Sender: FDA-Public Use
  Company Number: US-ELI_LILLY_AND_COMPANY-US201011003650

PATIENT
  Sex: Female

DRUGS (5)
  1. FORTEO [Suspect]
     Indication: OSTEOPOROSIS
     Dosage: 20 UG, DAILY (1/D)
  2. FORTEO [Suspect]
     Dosage: 20 UG, DAILY (1/D)
  3. CELEBREX [Concomitant]
     Dosage: UNK, 2/D
  4. COUMADIN [Concomitant]
  5. LYRICA [Concomitant]

REACTIONS (2)
  - HAEMORRHAGE [None]
  - HIP ARTHROPLASTY [None]
